FAERS Safety Report 17019983 (Version 2)
Quarter: 2019Q4

REPORT INFORMATION
  Report Type: Spontaneous
  Country: US (occurrence: US)
  Receive Date: 20191112
  Receipt Date: 20191120
  Transmission Date: 20200122
  Serious: Yes (Other)
  Sender: FDA-Public Use
  Company Number: US-TORRENT-00009446

PATIENT
  Sex: Female
  Weight: 72 kg

DRUGS (5)
  1. DIOVAN [Concomitant]
     Active Substance: VALSARTAN
     Indication: PRODUCT USED FOR UNKNOWN INDICATION
     Dosage: UNKNOWN
     Dates: end: 2018
  2. LOSARTAN. [Suspect]
     Active Substance: LOSARTAN
     Indication: CARDIAC DISORDER
     Dosage: ONE TABLET IN THE MORNING
     Dates: start: 201804, end: 201909
  3. METOPROLOL. [Concomitant]
     Active Substance: METOPROLOL
     Indication: PRODUCT USED FOR UNKNOWN INDICATION
     Dosage: UNKNOWN
  4. LOSARTAN 50MG [Suspect]
     Active Substance: LOSARTAN
     Indication: CARDIAC DISORDER
     Dosage: 1 TABLET A DAY
     Dates: start: 2019
  5. LOSARTAN 100 MG [Suspect]
     Active Substance: LOSARTAN
     Indication: CARDIAC DISORDER
     Dosage: HALF OF THE 100 MG TABLET
     Dates: start: 2019

REACTIONS (11)
  - Headache [Unknown]
  - Asthenia [Unknown]
  - Alopecia [Unknown]
  - Malaise [Unknown]
  - Chest pain [Unknown]
  - Tinnitus [Unknown]
  - Nausea [Unknown]
  - Dizziness [Unknown]
  - Vision blurred [Unknown]
  - Weight decreased [Unknown]
  - Panic reaction [Unknown]
